FAERS Safety Report 8584712-4 (Version None)
Quarter: 2012Q3

REPORT INFORMATION
  Report Type: 
  Country: None (occurrence: None)
  Receive Date: 20120810
  Receipt Date: 20120731
  Transmission Date: 20120928
  Serious: Yes (Hospitalization)
  Sender: FDA-Public Use
  Company Number: US-BAYER-2012-078817

PATIENT
  Age: 44 Year
  Sex: Female
  Weight: 138.32 kg

DRUGS (15)
  1. LIDODERM [Concomitant]
     Indication: BACK PAIN
     Dosage: 5 MG, 5% PRN
  2. DICYCLOMINE [Concomitant]
     Indication: IRRITABLE BOWEL SYNDROME
     Dosage: 20 MG, QID AS NEEDED
  3. HYZAAR [Concomitant]
  4. PROMETHAZINE [Concomitant]
     Indication: NAUSEA
     Dosage: 25 MG, Q 6 HOURS P.R.N.
  5. DROSPIRENONE AND ETHINYL ESTRADIOL [Suspect]
     Indication: DYSMENORRHOEA
  6. VALTREX [Concomitant]
     Dosage: 1 G, BID AS NEEDED
     Route: 048
  7. NAPROXEN (ALEVE) [Concomitant]
     Indication: BACK PAIN
     Dosage: UNK, AT NIGHT
  8. YAZ [Suspect]
     Indication: DYSMENORRHOEA
  9. LIPITOR [Concomitant]
     Dosage: 10 MG, DAILY
  10. PERCOCET [Concomitant]
     Indication: BACK PAIN
     Dosage: 325/5 TWO TABLETS Q 6 HOURS P.R.N.
  11. FLEXERIL [Concomitant]
     Dosage: 10 MG, HS
  12. YASMIN [Suspect]
     Indication: DYSMENORRHOEA
  13. LOSARTAN POTASSIUM AND HYDROCHLOROTHIAZIDE [Concomitant]
     Dosage: 100/25 ONE DAILY
  14. MULTI-VITAMIN [Concomitant]
     Dosage: UNK, DAILY
  15. ALBUTEROL [Concomitant]
     Dosage: 2 PUFF(S), QID AS NEEDED

REACTIONS (1)
  - DEEP VEIN THROMBOSIS [None]
